FAERS Safety Report 11363312 (Version 1)
Quarter: 2015Q3

REPORT INFORMATION
  Report Type: Report from Study
  Country: CL (occurrence: CL)
  Receive Date: 20150811
  Receipt Date: 20150811
  Transmission Date: 20151125
  Serious: Yes (Other)
  Sender: FDA-Public Use
  Company Number: CL-ROCHE-1523656

PATIENT
  Age: 83 Year
  Sex: Female
  Weight: 45 kg

DRUGS (2)
  1. NITRENDIPINE [Concomitant]
     Active Substance: NITRENDIPINE
     Indication: HYPERTENSION
     Route: 048
     Dates: start: 1999
  2. MABTHERA [Suspect]
     Active Substance: RITUXIMAB
     Indication: NON-HODGKIN^S LYMPHOMA
     Route: 042
     Dates: start: 20140824, end: 201501

REACTIONS (8)
  - Neck pain [Not Recovered/Not Resolved]
  - Fall [Unknown]
  - Swelling [Not Recovered/Not Resolved]
  - Blindness [Unknown]
  - Nasopharyngitis [Unknown]
  - Head injury [Not Recovered/Not Resolved]
  - Eye pain [Not Recovered/Not Resolved]
  - Myalgia [Unknown]

NARRATIVE: CASE EVENT DATE: 201411
